FAERS Safety Report 14296585 (Version 1)
Quarter: 2017Q4

REPORT INFORMATION
  Report Type: Spontaneous
  Country: US (occurrence: US)
  Receive Date: 20171218
  Receipt Date: 20171218
  Transmission Date: 20180321
  Serious: No
  Sender: FDA-Public Use
  Company Number: US-SHIRE-US201729045

PATIENT
  Age: 47 Year
  Sex: Female

DRUGS (1)
  1. XIIDRA [Suspect]
     Active Substance: LIFITEGRAST
     Indication: DRY EYE
     Dosage: 1 DROP IN EACH EYE, 2X/DAY:BID
     Route: 047
     Dates: start: 20171102

REACTIONS (4)
  - Instillation site discharge [Unknown]
  - Vision blurred [Unknown]
  - Instillation site reaction [Unknown]
  - Dysgeusia [Unknown]

NARRATIVE: CASE EVENT DATE: 20171103
